FAERS Safety Report 5055786-2 (Version None)
Quarter: 2006Q3

REPORT INFORMATION
  Report Type: 
  Country: None (occurrence: None)
  Receive Date: 20060720
  Receipt Date: 20060710
  Transmission Date: 20061208
  Serious: Yes (Other)
  Sender: FDA-Public Use
  Company Number: US-JNJFOC-20060702066

PATIENT
  Sex: Female
  Weight: 56.7 kg

DRUGS (4)
  1. REMICADE [Suspect]
     Indication: CROHN'S DISEASE
     Route: 042
  2. ESTROGENS SOL/INJ [Concomitant]
  3. BENADRYL [Concomitant]
     Dosage: ONE EVERY SIX HOURS
  4. IMODIUM [Concomitant]

REACTIONS (9)
  - ABASIA [None]
  - CONVULSION [None]
  - MALAISE [None]
  - NAUSEA [None]
  - OCULAR HYPERAEMIA [None]
  - PAIN [None]
  - RASH MACULAR [None]
  - VISUAL DISTURBANCE [None]
  - VOMITING [None]
